FAERS Safety Report 20520482 (Version 1)
Quarter: 2022Q1

REPORT INFORMATION
  Report Type: Report from Study
  Country: US (occurrence: US)
  Receive Date: 20220225
  Receipt Date: 20220225
  Transmission Date: 20220424
  Serious: No
  Sender: FDA-Public Use
  Company Number: US-SUNOVION-2022SUN000307

PATIENT
  Age: 77 Year
  Sex: Male

DRUGS (2)
  1. KYNMOBI [Suspect]
     Active Substance: APOMORPHINE HYDROCHLORIDE
     Indication: Product used for unknown indication
     Dosage: 15 MG
     Route: 060
  2. KYNMOBI [Suspect]
     Active Substance: APOMORPHINE HYDROCHLORIDE
     Dosage: 25 MG
     Route: 060
     Dates: start: 20220127

REACTIONS (3)
  - Dizziness [Unknown]
  - Product taste abnormal [Unknown]
  - Product use complaint [Unknown]

NARRATIVE: CASE EVENT DATE: 20220216
